FAERS Safety Report 4700800-4 (Version None)
Quarter: 2005Q2

REPORT INFORMATION
  Report Type: 
  Country: None (occurrence: None)
  Receive Date: 20050624
  Receipt Date: 20050216
  Transmission Date: 20051028
  Serious: Yes (Death)
  Sender: FDA-Public Use
  Company Number: 395956

PATIENT
  Age: 51 Year
  Sex: Female
  Weight: 58.1 kg

DRUGS (1)
  1. XELODA [Suspect]
     Indication: COLON CANCER METASTATIC
     Dosage: 1500 MG 2 PER DAY ORAL
     Route: 048
     Dates: start: 20041117, end: 20041201

REACTIONS (1)
  - COLORECTAL CANCER METASTATIC [None]
